FAERS Safety Report 12634454 (Version 1)
Quarter: 2016Q3

REPORT INFORMATION
  Report Type: Spontaneous
  Country: US (occurrence: None)
  Receive Date: 20160808
  Receipt Date: 20160808
  Transmission Date: 20161109
  Serious: Yes (Other)
  Sender: FDA-Public Use
  Company Number: None

PATIENT
  Age: 53 Year
  Sex: Female
  Weight: 58.97 kg

DRUGS (4)
  1. IRBESARTAN/HCT 150/12.5 [Suspect]
     Active Substance: HYDROCHLOROTHIAZIDE\IRBESARTAN
  2. ATORVASTATIN, 10 MG GREENSTONE L [Suspect]
     Active Substance: ATORVASTATIN
     Indication: HYPERLIPIDAEMIA
     Route: 048
     Dates: start: 20160708, end: 20160730
  3. AMLODIPINE [Concomitant]
     Active Substance: AMLODIPINE BESYLATE
  4. IRBESARTAN/HCT [Concomitant]

REACTIONS (6)
  - Insomnia [None]
  - Irritability [None]
  - Aphasia [None]
  - Neck pain [None]
  - Dyspnoea [None]
  - Palpitations [None]

NARRATIVE: CASE EVENT DATE: 20160730
